FAERS Safety Report 24453559 (Version 2)
Quarter: 2024Q4

REPORT INFORMATION
  Report Type: Report from Study
  Country: US (occurrence: US)
  Receive Date: 20241017
  Receipt Date: 20241018
  Transmission Date: 20250114
  Serious: No
  Sender: ROCHE
  Company Number: US-ROCHE-3127119

PATIENT
  Age: 40 Year
  Sex: Female

DRUGS (3)
  1. RITUXAN [Suspect]
     Active Substance: RITUXIMAB
     Indication: Retinal dystrophy
     Dosage: (STRENGTH: 500 MG/50 ML), INFUSE 1000MG INTRAVENOUSLY ON DAY(S) 1 AND DAY(S) 15 THEN EVERY 6 MONTH(S
     Route: 042
     Dates: start: 20220627
  2. RITUXAN [Suspect]
     Active Substance: RITUXIMAB
     Indication: Cutaneous vasculitis
  3. RITUXAN [Suspect]
     Active Substance: RITUXIMAB
     Indication: Autoimmune retinopathy

REACTIONS (2)
  - Off label use [Unknown]
  - No adverse event [Unknown]
